FAERS Safety Report 16409212 (Version 1)
Quarter: 2019Q2

REPORT INFORMATION
  Report Type: Spontaneous
  Country: US (occurrence: US)
  Receive Date: 20190502
  Receipt Date: 20190502
  Transmission Date: 20190711
  Serious: Yes (Life-Threatening, Hospitalization)
  Sender: FDA-Public Use
  Company Number: None

PATIENT
  Age: 19 Year
  Sex: Female

DRUGS (3)
  1. DIPHENHYDRAMINE HCL [Suspect]
     Active Substance: DIPHENHYDRAMINE HYDROCHLORIDE
  2. NO DRUG NAME [Concomitant]
  3. XYLOSE. [Suspect]
     Active Substance: XYLOSE

REACTIONS (4)
  - Wrong product administered [None]
  - Product contamination physical [None]
  - Burning sensation [None]
  - Seizure [None]

NARRATIVE: CASE EVENT DATE: 20190409
